FAERS Safety Report 22169652 (Version 1)
Quarter: 2023Q2

REPORT INFORMATION
  Report Type: Spontaneous
  Country: US (occurrence: US)
  Receive Date: 20230404
  Receipt Date: 20230404
  Transmission Date: 20230722
  Serious: No
  Sender: FDA-Public Use
  Company Number: US-SA-SAC20230331000343

PATIENT
  Sex: Female

DRUGS (5)
  1. DUPIXENT [Suspect]
     Active Substance: DUPILUMAB
     Indication: Rhinitis allergic
     Dosage: 300 MG, QOW
     Route: 058
  2. WEGOVY [Concomitant]
     Active Substance: SEMAGLUTIDE
     Dosage: UNK
  3. ALBUTEROL SULFATE [Concomitant]
     Active Substance: ALBUTEROL SULFATE
     Dosage: UNK
  4. RHOFADE [Concomitant]
     Active Substance: OXYMETAZOLINE HYDROCHLORIDE
     Dosage: UNK
  5. ROPINIROLE [Concomitant]
     Active Substance: ROPINIROLE
     Dosage: UNK

REACTIONS (6)
  - Rhinitis allergic [Unknown]
  - Pruritus [Unknown]
  - Rash [Unknown]
  - Scab [Unknown]
  - Product dose omission issue [Unknown]
  - Product use in unapproved indication [Unknown]
